FAERS Safety Report 7378004-9 (Version None)
Quarter: 2011Q1

REPORT INFORMATION
  Report Type: 
  Country: None (occurrence: None)
  Receive Date: 20110328
  Receipt Date: 20110325
  Transmission Date: 20110831
  Serious: Yes (Other)
  Sender: FDA-Public Use
  Company Number: JP-PFIZER INC-2011066366

PATIENT
  Age: 79 Year
  Sex: Male

DRUGS (4)
  1. TIMOPTOL [Concomitant]
  2. RESCULA [Concomitant]
     Dosage: UNK
     Dates: start: 19970101
  3. XALATAN [Suspect]
     Dosage: ONCE DAILY AT NIGHT
     Route: 047
     Dates: start: 20110323
  4. XALATAN [Suspect]
     Dosage: UNK
     Route: 047
     Dates: start: 19970101

REACTIONS (3)
  - INTRAOCULAR PRESSURE FLUCTUATION [None]
  - CATARACT OPERATION [None]
  - VISUAL ACUITY REDUCED [None]
